FAERS Safety Report 4824178-0 (Version None)
Quarter: 2005Q4

REPORT INFORMATION
  Report Type: 
  Country: None (occurrence: None)
  Receive Date: 20051108
  Receipt Date: 20051102
  Transmission Date: 20060501
  Serious: Yes (Other)
  Sender: FDA-Public Use
  Company Number: USA0507103255

PATIENT
  Sex: Female

DRUGS (5)
  1. ZYPREXA [Suspect]
     Indication: NERVOUS SYSTEM DISORDER
     Dosage: 7.5 MG DAY
     Dates: start: 20010101
  2. DICYCLOMINE [Concomitant]
  3. PROTONIX [Concomitant]
  4. VITAMIN E (HERAL OIL NOS) [Concomitant]
  5. ACIDOPHILUS (LACTOBACILLUS ACIDOPHILUS) [Concomitant]

REACTIONS (11)
  - ASTHENIA [None]
  - BLINDNESS [None]
  - CATARACT [None]
  - COLD SWEAT [None]
  - DECREASED APPETITE [None]
  - DIARRHOEA [None]
  - ECONOMIC PROBLEM [None]
  - MALAISE [None]
  - PAIN [None]
  - PAIN IN JAW [None]
  - VITREOUS HAEMORRHAGE [None]
